FAERS Safety Report 18330416 (Version 6)
Quarter: 2021Q1

REPORT INFORMATION
  Report Type: Report from Study
  Country: GB (occurrence: GB)
  Receive Date: 20200930
  Receipt Date: 20210203
  Transmission Date: 20210419
  Serious: Yes (Other)
  Sender: FDA-Public Use
  Company Number: GB-PFIZER INC-2020371473

PATIENT
  Weight: 40.6 kg

DRUGS (24)
  1. ONDANSETRON [Concomitant]
     Active Substance: ONDANSETRON
     Indication: ANTIEMETIC SUPPORTIVE CARE
     Dosage: 8 MG, 3X/DAY
     Dates: start: 20200905
  2. CYCLIZINE [Concomitant]
     Active Substance: CYCLIZINE
     Dosage: 25 MG, 3X/DAY
     Dates: start: 20200906
  3. LEVOMEPROMAZINE [Concomitant]
     Active Substance: LEVOMEPROMAZINE
     Indication: NAUSEA
     Dosage: 2.4 MG, 1X/DAY
     Dates: start: 20200917, end: 20200917
  4. TAUROLIDINE [Concomitant]
     Active Substance: TAUROLIDINE
  5. GEMTUZUMAB OZOGAMICIN [Suspect]
     Active Substance: GEMTUZUMAB OZOGAMICIN
     Indication: ACUTE MYELOID LEUKAEMIA
     Dosage: 4.2 MG
     Route: 042
     Dates: start: 20200908, end: 20200908
  6. COTRIMAXAZOLE [Concomitant]
     Active Substance: SULFAMETHOXAZOLE\TRIMETHOPRIM
     Indication: PROPHYLAXIS
     Dosage: 480 MG, 2X/DAY (FRI+SAT)
     Dates: start: 20200911
  7. ALLOPURINOL. [Concomitant]
     Active Substance: ALLOPURINOL
     Indication: PROPHYLAXIS
     Dosage: 300 MG, 1X/DAY
     Dates: start: 20200904, end: 20200904
  8. ALLOPURINOL. [Concomitant]
     Active Substance: ALLOPURINOL
     Dosage: 300 MG, 1X/DAY
     Dates: start: 20200907, end: 20200912
  9. MITOXANTRONE HCL [Suspect]
     Active Substance: MITOXANTRONE HYDROCHLORIDE
     Dosage: 17 MG/M2, DAILY
     Route: 042
     Dates: end: 20200908
  10. GENTAMYCIN [Concomitant]
     Active Substance: GENTAMICIN
     Indication: PYREXIA
     Dosage: 333 MG, 1X/DAY
     Dates: start: 20200904, end: 20200906
  11. RASBURICASE [Concomitant]
     Active Substance: RASBURICASE
     Indication: PROPHYLAXIS
     Dosage: 9 MG, 1X/DAY
     Dates: start: 20200905, end: 20200907
  12. ESOMEPRAZOLE. [Concomitant]
     Active Substance: ESOMEPRAZOLE MAGNESIUM
     Dosage: UNK
  13. CLENIL MODULITE [Concomitant]
     Active Substance: BECLOMETHASONE DIPROPIONATE
     Indication: ASTHMA
     Dosage: 2 DF, 2X/DAY (2 PUFFS)
     Dates: start: 20200904
  14. MEROPENEM. [Concomitant]
     Active Substance: MEROPENEM
     Indication: PYREXIA
     Dosage: 960 MG, 3X/DAY
     Dates: start: 20200908, end: 20200912
  15. CYCLIZINE [Concomitant]
     Active Substance: CYCLIZINE
     Indication: NAUSEA
     Dosage: 50 MG, 3X/DAY
     Dates: start: 20200905, end: 20200905
  16. AMBISOME [Concomitant]
     Active Substance: AMPHOTERICIN B
     Indication: ANTIFUNGAL PROPHYLAXIS
     Dosage: 90 MG, 1X/DAY (MON, WED, FRI)
     Dates: start: 20200907
  17. PARACETAMOL [Concomitant]
     Active Substance: ACETAMINOPHEN
     Indication: PAIN
     Dosage: 700 MG, 4X/DAY
     Dates: start: 20200904
  18. PARACETAMOL [Concomitant]
     Active Substance: ACETAMINOPHEN
     Indication: PYREXIA
  19. ENOXAPARIN [Concomitant]
     Active Substance: ENOXAPARIN
     Dosage: 20 MG, 1X/DAY
     Dates: start: 20200907, end: 20200907
  20. MITOXANTRONE HCL [Suspect]
     Active Substance: MITOXANTRONE HYDROCHLORIDE
     Indication: ACUTE MYELOID LEUKAEMIA
     Dosage: 68 MG/M2, 1X/DAY
     Route: 042
     Dates: start: 20200905
  21. CHLORPHENIRAMINE [CHLORPHENAMINE] [Concomitant]
     Active Substance: CHLORPHENIRAMINE
     Indication: PREMEDICATION
     Dosage: 10 MG, AS NEEDED
     Dates: start: 20200908, end: 20200908
  22. TAZOCIN [Concomitant]
     Active Substance: PIPERACILLIN SODIUM\TAZOBACTAM SODIUM
     Indication: PYREXIA
     Dosage: 435 MG, 4X/DAY
     Dates: start: 20200904, end: 20200908
  23. METOCLOPRAMIDE. [Concomitant]
     Active Substance: METOCLOPRAMIDE
     Indication: NAUSEA
     Dosage: 5 MG, 3X/DAY (PRN)
     Dates: start: 20200910, end: 20200912
  24. LAXIDO [Concomitant]
     Active Substance: POLYETHYLENE GLYCOL 3350\POTASSIUM CHLORIDE\SODIUM BICARBONATE\SODIUM CHLORIDE
     Indication: CONSTIPATION
     Dosage: 1 DF, AS NEEDED (SACHET)
     Dates: start: 20200916, end: 20200916

REACTIONS (1)
  - Haematuria [Recovered/Resolved]

NARRATIVE: CASE EVENT DATE: 20200918
